FAERS Safety Report 10760443 (Version 2)
Quarter: 2015Q2

REPORT INFORMATION
  Report Type: Report from Study
  Country: AU (occurrence: AU)
  Receive Date: 20150204
  Receipt Date: 20150403
  Transmission Date: 20150821
  Serious: Yes (Other)
  Sender: FDA-Public Use
  Company Number: AU-ROCHE-1532340

PATIENT
  Age: 61 Year
  Sex: Male

DRUGS (2)
  1. LUCENTIS [Suspect]
     Active Substance: RANIBIZUMAB
     Route: 065
     Dates: start: 20141111
  2. LUCENTIS [Suspect]
     Active Substance: RANIBIZUMAB
     Indication: AGE-RELATED MACULAR DEGENERATION
     Dosage: 2.3/0.23MG/ML?IN RIGHT EYE
     Route: 050
     Dates: start: 20140623

REACTIONS (5)
  - Visual acuity reduced [Not Recovered/Not Resolved]
  - Choroidal neovascularisation [Recovered/Resolved]
  - Blindness unilateral [Not Recovered/Not Resolved]
  - Drug ineffective [Unknown]
  - Chorioretinopathy [Not Recovered/Not Resolved]

NARRATIVE: CASE EVENT DATE: 20140623
